FAERS Safety Report 9420135 (Version 1)
Quarter: 2013Q3

REPORT INFORMATION
  Report Type: Spontaneous
  Country: JP (occurrence: JP)
  Receive Date: 20130725
  Receipt Date: 20130725
  Transmission Date: 20140515
  Serious: Yes (Other)
  Sender: FDA-Public Use
  Company Number: JP-BRISTOL-MYERS SQUIBB COMPANY-19128370

PATIENT
  Age: 6 Decade
  Sex: Female

DRUGS (2)
  1. TAXOL INJ [Suspect]
     Indication: BREAST CANCER
     Route: 042
     Dates: start: 201210
  2. AVASTIN [Suspect]
     Indication: BREAST CANCER
     Dosage: INJ.
     Route: 042
     Dates: start: 201210

REACTIONS (2)
  - Multi-organ failure [Unknown]
  - Disuse syndrome [Unknown]
